FAERS Safety Report 8796318 (Version 2)
Quarter: 2012Q4

REPORT INFORMATION
  Report Type: 
  Country: FR (occurrence: FR)
  Receive Date: 20120919
  Receipt Date: 20121105
  Transmission Date: 20130627
  Serious: Yes (Death, Life-Threatening)
  Sender: FDA-Public Use
  Company Number: FR-PFIZER INC-2012227560

PATIENT
  Age: 70 Year
  Sex: Male

DRUGS (3)
  1. SUTENT [Suspect]
     Indication: RENAL CARCINOMA
     Dosage: 50 mg, 1x/day
     Route: 048
     Dates: start: 201110, end: 20120816
  2. INEXIUM [Suspect]
     Dosage: UNK
     Route: 048
     Dates: end: 20120818
  3. SMECTA [Suspect]
     Dosage: UNK
     Route: 048
     Dates: end: 20120818

REACTIONS (1)
  - Hepatitis fulminant [Fatal]
